FAERS Safety Report 16572467 (Version 2)
Quarter: 2019Q3

REPORT INFORMATION
  Report Type: Spontaneous
  Country: JP (occurrence: JP)
  Receive Date: 20190715
  Receipt Date: 20190805
  Transmission Date: 20191004
  Serious: No
  Sender: FDA-Public Use
  Company Number: JP-009507513-1907JPN000606J

PATIENT
  Sex: Female

DRUGS (1)
  1. FOSAMAC TABLETS-5 [Suspect]
     Active Substance: ALENDRONATE SODIUM
     Indication: OSTEOPOROSIS
     Dosage: 5 MILLIGRAM, QD
     Route: 048
     Dates: start: 200907

REACTIONS (1)
  - Procedural pain [Unknown]
